FAERS Safety Report 20393236 (Version 3)
Quarter: 2022Q2

REPORT INFORMATION
  Report Type: Spontaneous
  Country: HN (occurrence: HN)
  Receive Date: 20220128
  Receipt Date: 20220406
  Transmission Date: 20220720
  Serious: Yes (Death, Hospitalization, Other)
  Sender: FDA-Public Use
  Company Number: HN-BIOGEN-2022BI01089672

PATIENT
  Age: 8 Year
  Sex: Female
  Weight: 55 kg

DRUGS (4)
  1. AVONEX [Suspect]
     Active Substance: INTERFERON BETA-1A
     Indication: Relapsing multiple sclerosis
     Route: 030
     Dates: start: 20210715
  2. AVONEX [Suspect]
     Active Substance: INTERFERON BETA-1A
  3. AVONEX [Suspect]
     Active Substance: INTERFERON BETA-1A
  4. AVONEX [Suspect]
     Active Substance: INTERFERON BETA-1A

REACTIONS (5)
  - Multiple sclerosis [Fatal]
  - Meningitis meningococcal [Unknown]
  - Coma [Not Recovered/Not Resolved]
  - Atlantoaxial subluxation [Unknown]
  - Off label use [Not Recovered/Not Resolved]

NARRATIVE: CASE EVENT DATE: 20210715
